FAERS Safety Report 7009304-X (Version None)
Quarter: 2010Q3

REPORT INFORMATION
  Report Type: 
  Country: None (occurrence: None)
  Receive Date: 20100923
  Receipt Date: 20100910
  Transmission Date: 20110219
  Serious: Yes (Other)
  Sender: FDA-Public Use
  Company Number: US-ELI_LILLY_AND_COMPANY-US201009003259

PATIENT
  Age: 83 Year
  Sex: Female

DRUGS (2)
  1. CYMBALTA [Suspect]
     Indication: NEUROPATHY PERIPHERAL
     Dosage: 30 MG, DAILY (1/D)
  2. COUMADIN [Concomitant]

REACTIONS (8)
  - DEPRESSED LEVEL OF CONSCIOUSNESS [None]
  - FEELING ABNORMAL [None]
  - HYPERSOMNIA [None]
  - LOSS OF CONSCIOUSNESS [None]
  - MALAISE [None]
  - MEMORY IMPAIRMENT [None]
  - NAUSEA [None]
  - OFF LABEL USE [None]
